FAERS Safety Report 9851457 (Version 2)
Quarter: 2014Q1

REPORT INFORMATION
  Report Type: Spontaneous
  Country: US (occurrence: US)
  Receive Date: 20140129
  Receipt Date: 20140217
  Transmission Date: 20141002
  Serious: Yes (Other)
  Sender: FDA-Public Use
  Company Number: US-BIOGENIDEC-2014BI007218

PATIENT
  Age: 65 Year
  Sex: Female

DRUGS (10)
  1. TYSABRI [Suspect]
     Indication: RELAPSING-REMITTING MULTIPLE SCLEROSIS
     Route: 042
     Dates: start: 20100923, end: 20130610
  2. GILENYA [Concomitant]
     Dates: start: 20131111, end: 201401
  3. LEVOTHYROXINE [Concomitant]
  4. METHYLPHENIDATE [Concomitant]
     Route: 048
  5. NORTRIPTYLINE [Concomitant]
     Route: 048
  6. OXCARBAZEPINE [Concomitant]
     Route: 048
  7. RESTASIS [Concomitant]
     Route: 047
  8. SENNA [Concomitant]
     Route: 048
  9. SIMVASTATIN [Concomitant]
  10. VITAMIN D [Concomitant]
     Route: 048

REACTIONS (1)
  - Lymphoma [Not Recovered/Not Resolved]
